FAERS Safety Report 9361627 (Version 1)
Quarter: 2013Q2

REPORT INFORMATION
  Report Type: Spontaneous
  Country: US (occurrence: US)
  Receive Date: 20130621
  Receipt Date: 20130621
  Transmission Date: 20140414
  Serious: Yes (Hospitalization, Other)
  Sender: FDA-Public Use
  Company Number: US-TEVA-413653USA

PATIENT
  Age: 53 Year
  Sex: Male

DRUGS (4)
  1. GABAPENTIN [Suspect]
     Indication: DRUG ABUSE
     Route: 065
  2. GABAPENTIN [Suspect]
     Indication: ACCIDENTAL OVERDOSE
     Route: 065
  3. METHADONE [Suspect]
     Indication: DRUG ABUSE
     Route: 065
  4. METHADONE [Suspect]
     Indication: ACCIDENTAL OVERDOSE
     Route: 065

REACTIONS (5)
  - Coma [Unknown]
  - Respiratory failure [Unknown]
  - Drug abuse [Unknown]
  - Drug abuse [Unknown]
  - Accidental overdose [Unknown]
